FAERS Safety Report 6018294-8 (Version None)
Quarter: 2008Q4

REPORT INFORMATION
  Report Type: 
  Country: None (occurrence: None)
  Receive Date: 20081223
  Receipt Date: 20081211
  Transmission Date: 20090506
  Serious: Yes (Other)
  Sender: FDA-Public Use
  Company Number: FR-PFIZER INC-2008091309

PATIENT

DRUGS (4)
  1. LYRICA [Suspect]
  2. ACETAMINOPHEN [Concomitant]
  3. MAGNE-B6 [Concomitant]
  4. SURGESTONE [Concomitant]

REACTIONS (3)
  - DYSGEUSIA [None]
  - GLOSSODYNIA [None]
  - INTERVERTEBRAL DISC PROTRUSION [None]
